FAERS Safety Report 14562947 (Version 3)
Quarter: 2018Q1

REPORT INFORMATION
  Report Type: Spontaneous
  Country: JP (occurrence: JP)
  Receive Date: 20180222
  Receipt Date: 20180323
  Transmission Date: 20180509
  Serious: Yes (Death, Hospitalization, Other)
  Sender: FDA-Public Use
  Company Number: JP-ALLERGAN-1809783US

PATIENT
  Age: 69 Year
  Sex: Male

DRUGS (3)
  1. LINACLOTIDE - BP [Suspect]
     Active Substance: LINACLOTIDE
     Indication: CONSTIPATION
     Dosage: 0.25 MG, QD
     Route: 048
     Dates: start: 20171013, end: 20171124
  2. SELENICA-R [Concomitant]
     Active Substance: VALPROATE SODIUM
     Indication: PRODUCT USED FOR UNKNOWN INDICATION
     Dosage: UNK
     Route: 065
     Dates: start: 20170929, end: 20171124
  3. LINACLOTIDE - BP [Suspect]
     Active Substance: LINACLOTIDE
     Dosage: 0.5 MG, QD
     Route: 048
     Dates: start: 20170909, end: 20171012

REACTIONS (2)
  - Off label use [Unknown]
  - Volvulus [Fatal]

NARRATIVE: CASE EVENT DATE: 20171109
